FAERS Safety Report 5299876-8 (Version None)
Quarter: 2007Q2

REPORT INFORMATION
  Report Type: 
  Country: None (occurrence: None)
  Receive Date: 20070410
  Receipt Date: 20070328
  Transmission Date: 20071010
  Serious: Yes (Death)
  Sender: FDA-Public Use
  Company Number: 2007P1000165

PATIENT
  Age: 22 Year
  Sex: Male

DRUGS (6)
  1. BUSULFAN (BUSULFAN) [Suspect]
     Indication: STEM CELL TRANSPLANT
     Dosage: IV
     Route: 042
  2. CYCLOPHOSPHAMIDE [Suspect]
     Indication: STEM CELL TRANSPLANT
     Dosage: IV
     Route: 042
  3. CAMPATH [Suspect]
     Indication: STEM CELL TRANSPLANT
     Dosage: IV
     Route: 042
  4. CYCLOSPORINE [Suspect]
     Indication: PROPHYLAXIS AGAINST GRAFT VERSUS HOST DISEASE
  5. SULFAMETHOXAZOLE [Concomitant]
  6. TRIMETHOPRIM [Concomitant]

REACTIONS (4)
  - AMNESIA [None]
  - CEREBRAL TOXOPLASMOSIS [None]
  - CONFUSIONAL STATE [None]
  - PYREXIA [None]
